FAERS Safety Report 12004621 (Version 1)
Quarter: 2016Q1

REPORT INFORMATION
  Report Type: Spontaneous
  Country: JP (occurrence: JP)
  Receive Date: 20160204
  Receipt Date: 20160204
  Transmission Date: 20160526
  Serious: Yes (Other)
  Sender: FDA-Public Use
  Company Number: JP-BAYER-2016-020271

PATIENT
  Age: 38 Year
  Sex: Female

DRUGS (2)
  1. DIENOGEST [Concomitant]
     Active Substance: DIENOGEST
     Route: 048
  2. MIRENA [Suspect]
     Active Substance: LEVONORGESTREL
     Dosage: 20 MCG/24HR, CONT
     Route: 015
     Dates: start: 20160118, end: 20160118

REACTIONS (4)
  - Uterine cervical laceration [Recovered/Resolved]
  - Procedural haemorrhage [Recovered/Resolved]
  - Device difficult to use [None]
  - Complication of device insertion [None]

NARRATIVE: CASE EVENT DATE: 20160118
